FAERS Safety Report 4459524-3 (Version None)
Quarter: 2004Q3

REPORT INFORMATION
  Report Type: 
  Country: None (occurrence: None)
  Receive Date: 20040910
  Receipt Date: 20040615
  Transmission Date: 20050211
  Serious: No
  Sender: FDA-Public Use
  Company Number: 2004219233US

PATIENT
  Sex: Female

DRUGS (5)
  1. BEXTRA [Suspect]
  2. LEVOXYL [Concomitant]
  3. DEXOPHAN [Concomitant]
  4. RANITIDINE [Concomitant]
  5. FOSAMAX [Concomitant]

REACTIONS (2)
  - GLOSSITIS [None]
  - GLOSSODYNIA [None]
